FAERS Safety Report 6246117-0 (Version None)
Quarter: 2009Q2

REPORT INFORMATION
  Report Type: 
  Country: None (occurrence: None)
  Receive Date: 20090626
  Receipt Date: 20090318
  Transmission Date: 20091009
  Serious: No
  Sender: FDA-Public Use
  Company Number: A0774006A

PATIENT
  Age: 36 Year
  Sex: Female

DRUGS (2)
  1. IMITREX [Suspect]
     Indication: MIGRAINE
     Dosage: 50MG AS REQUIRED
     Route: 048
     Dates: start: 20090201, end: 20090301
  2. NO CONCURRENT MEDICATION [Concomitant]

REACTIONS (1)
  - PRURITUS [None]
